FAERS Safety Report 15246097 (Version 1)
Quarter: 2018Q4

REPORT INFORMATION
  Report Type: Report from Study
  Country: GB (occurrence: GB)
  Receive Date: 20180806
  Receipt Date: 20180806
  Transmission Date: 20190204
  Serious: Yes (Hospitalization)
  Sender: FDA-Public Use
  Company Number: GB-ASTRAZENECA-2018SE99156

PATIENT
  Age: 18380 Day
  Sex: Female
  Weight: 84.5 kg

DRUGS (11)
  1. MEDI4736 [Suspect]
     Active Substance: DURVALUMAB
     Indication: MALIGNANT MELANOMA
     Dosage: 20.0MG/KG ONCE/SINGLE ADMINISTRATION
     Route: 042
     Dates: start: 20180717
  2. IMCGP100 [Suspect]
     Active Substance: TEBENTAFUSP
     Indication: MALIGNANT MELANOMA
     Dosage: 20.0UG ONCE/SINGLE ADMINISTRATION
     Route: 042
     Dates: start: 20180717, end: 20180717
  3. IMCGP100 [Suspect]
     Active Substance: TEBENTAFUSP
     Indication: MALIGNANT MELANOMA
     Dosage: 30.0UG ONCE/SINGLE ADMINISTRATION
     Route: 042
     Dates: start: 20180723, end: 20180723
  4. HYDROCORTISONE. [Concomitant]
     Active Substance: HYDROCORTISONE
     Dosage: 1 %
     Route: 065
     Dates: start: 20180704
  5. BECLOMETHASONE [Concomitant]
     Active Substance: BECLOMETHASONE
     Route: 065
     Dates: start: 2007
  6. PIRITON [Concomitant]
     Active Substance: CHLORPHENIRAMINE MALEATE
     Route: 065
     Dates: start: 201605
  7. IMCGP100 [Suspect]
     Active Substance: TEBENTAFUSP
     Indication: MALIGNANT MELANOMA
     Dosage: 68.0UG ONCE/SINGLE ADMINISTRATION
     Route: 042
     Dates: start: 20180730, end: 20180730
  8. GAVISCON [Concomitant]
     Active Substance: ALUMINUM HYDROXIDE\MAGNESIUM CARBONATE
     Route: 065
     Dates: start: 20180611
  9. IMCGP100 [Suspect]
     Active Substance: TEBENTAFUSP
     Indication: MALIGNANT MELANOMA
     Dosage: 20.0UG ONCE/SINGLE ADMINISTRATION
     Route: 042
     Dates: start: 20180703, end: 20180703
  10. VENTOLIN [Concomitant]
     Active Substance: ALBUTEROL SULFATE
     Route: 065
     Dates: start: 2007
  11. COCODAMOL [Concomitant]
     Active Substance: ACETAMINOPHEN\CODEINE PHOSPHATE
     Route: 065
     Dates: start: 2012

REACTIONS (1)
  - Cytokine release syndrome [Recovered/Resolved]

NARRATIVE: CASE EVENT DATE: 20180718
